FAERS Safety Report 5663106-5 (Version None)
Quarter: 2008Q1

REPORT INFORMATION
  Report Type: 
  Country: None (occurrence: None)
  Receive Date: 20080313
  Receipt Date: 20080305
  Transmission Date: 20080703
  Serious: Yes (Other)
  Sender: FDA-Public Use
  Company Number: A0715031A

PATIENT
  Age: 72 Year
  Sex: Female
  Weight: 62.3 kg

DRUGS (1)
  1. LAMICTAL [Suspect]
     Indication: ELECTROCONVULSIVE THERAPY

REACTIONS (1)
  - SUICIDAL IDEATION [None]
